FAERS Safety Report 24790737 (Version 1)
Quarter: 2024Q4

REPORT INFORMATION
  Report Type: Report from Study
  Country: US (occurrence: US)
  Receive Date: 20241230
  Receipt Date: 20241230
  Transmission Date: 20250115
  Serious: Yes (Hospitalization, Other)
  Sender: BAUSCH AND LOMB
  Company Number: US-BAUSCH-BL-2024-018958

PATIENT
  Age: 18 Year
  Sex: Male

DRUGS (2)
  1. BUPROPION HYDROCHLORIDE XL [Suspect]
     Active Substance: BUPROPION HYDROCHLORIDE
     Indication: Product used for unknown indication
     Route: 048
  2. BUPROPION HYDROCHLORIDE XL [Suspect]
     Active Substance: BUPROPION HYDROCHLORIDE
     Dosage: UNINTENTIONALLY TAKING A SECOND DOSE, 450MG LAST NIGHT AT AROUND 9AM
     Route: 048

REACTIONS (10)
  - Feeling abnormal [Recovering/Resolving]
  - Mental status changes [Recovering/Resolving]
  - Anxiety [Recovering/Resolving]
  - Hallucination [Recovering/Resolving]
  - Tachycardia [Recovering/Resolving]
  - Hypertension [Recovering/Resolving]
  - Seizure [Recovering/Resolving]
  - Accidental overdose [Unknown]
  - Medication error [Unknown]
  - Inappropriate schedule of product administration [Unknown]
